FAERS Safety Report 4587255-8 (Version None)
Quarter: 2005Q1

REPORT INFORMATION
  Report Type: 
  Country: None (occurrence: None)
  Receive Date: 20050218
  Receipt Date: 20050210
  Transmission Date: 20050727
  Serious: Yes (Other)
  Sender: FDA-Public Use
  Company Number: JP-GLAXOSMITHKLINE-B0371475A

PATIENT
  Age: 39 Year
  Sex: Male

DRUGS (2)
  1. PAXIL [Suspect]
     Indication: DEPRESSION
     Dosage: 20MG PER DAY
     Route: 048
     Dates: start: 20050122
  2. RIZE [Concomitant]
     Route: 048

REACTIONS (1)
  - DEAFNESS [None]
